FAERS Safety Report 9334952 (Version 2)
Quarter: 2013Q4

REPORT INFORMATION
  Report Type: Spontaneous
  Country: US (occurrence: US)
  Receive Date: 20130606
  Receipt Date: 20131008
  Transmission Date: 20140711
  Serious: No
  Sender: FDA-Public Use
  Company Number: US-AMGEN-USASP2013035594

PATIENT
  Age: 75 Year
  Sex: Female
  Weight: 83.45 kg

DRUGS (23)
  1. PROLIA [Suspect]
     Indication: OSTEOPOROSIS POSTMENOPAUSAL
     Dosage: 60 MG, Q6MO
     Route: 058
     Dates: start: 20120625
  2. PREMARIN [Concomitant]
     Dosage: 0.45 MG, UNK
     Route: 048
  3. ANTIHYPERTENSIVES [Concomitant]
     Indication: BLOOD PRESSURE
  4. ALBUTEROL                          /00139501/ [Concomitant]
     Dosage: 90 MUG, Q4H
  5. BETAMETHASONE DIPROPIONATE [Concomitant]
     Dosage: 0.05%
  6. CITRACAL MAXIMUM [Concomitant]
     Dosage: UNK UNK, QD
     Route: 048
  7. KEFLEX                             /00145501/ [Concomitant]
     Dosage: 250 MG, UNK
     Route: 048
  8. VITAMIN D                          /00107901/ [Concomitant]
     Dosage: UNK UNK, QD
     Route: 048
  9. PERCOCET                           /00446701/ [Concomitant]
     Dosage: 5/325 TABLET
  10. PREMARIN VAGINAL [Concomitant]
     Dosage: 0.625 UNK, UNK
  11. FLEXERIL                           /00428402/ [Concomitant]
     Dosage: 10 MG, Q8H
     Route: 048
  12. LASIX                              /00032601/ [Concomitant]
     Dosage: 20 MG, QD
     Route: 048
  13. HYDROCORTISONE [Concomitant]
     Dosage: 2.5 %, UNK
  14. PREVACID [Concomitant]
     Dosage: 30 MG, QD
     Route: 048
  15. SYNTHROID [Concomitant]
     Dosage: 0.088 MG, QD
     Route: 048
  16. LISINOPRIL [Concomitant]
     Dosage: 20 MG, QD
     Route: 048
  17. ASMANEX [Concomitant]
     Dosage: 220 UNK, BID
  18. MULTIPLE VITAMINS [Concomitant]
     Route: 048
  19. ICAPS LUTEIN + ZEAXANTHIN FORMULA [Concomitant]
  20. OMEGA 3                            /01334101/ [Concomitant]
     Dosage: UNK UNK, TID
     Route: 048
  21. SPIRONOLACTONE [Concomitant]
     Dosage: 50 MG, QD
     Route: 048
  22. VERAPAMIL [Concomitant]
     Dosage: 240 MG, QD
     Route: 048
  23. VITAMIN E-400 [Concomitant]

REACTIONS (4)
  - Abdominal discomfort [Unknown]
  - Back pain [Unknown]
  - Gastrooesophageal reflux disease [Unknown]
  - Musculoskeletal pain [Unknown]
